FAERS Safety Report 8838496 (Version 1)
Quarter: 2012Q4

REPORT INFORMATION
  Report Type: 
  Country: GR (occurrence: GR)
  Receive Date: 20121012
  Receipt Date: 20121012
  Transmission Date: 20130627
  Serious: Yes (Other)
  Sender: FDA-Public Use
  Company Number: PHHY2012GR090654

PATIENT
  Age: 17 Year
  Sex: Female

DRUGS (1)
  1. MYFORTIC [Suspect]
     Indication: GLOMERULONEPHRITIS
     Dosage: 360 mg, BID
     Dates: start: 201203

REACTIONS (1)
  - Alopecia [Unknown]
